FAERS Safety Report 7756828-3 (Version None)
Quarter: 2011Q3

REPORT INFORMATION
  Report Type: 
  Country: None (occurrence: None)
  Receive Date: 20110916
  Receipt Date: 20110907
  Transmission Date: 20111222
  Serious: Yes (Hospitalization)
  Sender: FDA-Public Use
  Company Number: DE-UCBSA-039197

PATIENT
  Sex: Female

DRUGS (5)
  1. KEPPRA [Suspect]
     Dosage: 500  MG , 2 TABLETS : TOTAL AMOUNT 1000 MG
     Route: 048
     Dates: start: 20110814, end: 20110814
  2. TEGRETOL-XR [Suspect]
     Dosage: 300 MG, 3 TABLETS,TOTAL AMOUNT 900 MG
     Route: 048
     Dates: start: 20110814, end: 20110814
  3. TOPAMAX [Suspect]
     Dosage: 25 MG, 1 TABLET :TOTAL AMOUNT 25 MG
     Route: 048
     Dates: start: 20110814, end: 20110814
  4. TOPAMAX [Suspect]
     Dosage: 100 MG, 2 TABLET: TOTAL AMOUNT 200 MG
     Route: 048
     Dates: start: 20110814, end: 20110814
  5. KEPPRA [Suspect]
     Dosage: 1000 MG , 2 TABLETS: TOTAL AMOUNT 2000 MG
     Route: 048
     Dates: start: 20110814, end: 20110814

REACTIONS (1)
  - ACCIDENTAL EXPOSURE [None]
